FAERS Safety Report 8069604-1 (Version None)
Quarter: 2012Q1

REPORT INFORMATION
  Report Type: 
  Country: None (occurrence: None)
  Receive Date: 20120125
  Receipt Date: 20120113
  Transmission Date: 20120608
  Serious: Yes (Hospitalization, Other)
  Sender: FDA-Public Use
  Company Number: FR-ELI_LILLY_AND_COMPANY-FR201201003706

PATIENT
  Age: 64 Year
  Sex: Male

DRUGS (1)
  1. FORTEO [Suspect]
     Indication: OSTEOPOROSIS
     Dosage: 20 UG, UNK
     Route: 058
     Dates: start: 20110717, end: 20110818

REACTIONS (3)
  - PARANEOPLASTIC SYNDROME [None]
  - RHEUMATOID ARTHRITIS [None]
  - LUNG NEOPLASM [None]
